FAERS Safety Report 9155611 (Version 1)
Quarter: 2013Q1

REPORT INFORMATION
  Report Type: Spontaneous
  Country: DK (occurrence: DK)
  Receive Date: 20130311
  Receipt Date: 20130311
  Transmission Date: 20140127
  Serious: Yes (Death, Other)
  Sender: FDA-Public Use
  Company Number: PHBS1999DK01791

PATIENT
  Age: 43 Year
  Sex: Male

DRUGS (11)
  1. LEPONEX [Suspect]
     Indication: BIPOLAR DISORDER
     Route: 048
     Dates: start: 19981118
  2. ANAFRANIL [Suspect]
     Route: 048
     Dates: start: 19981118
  3. TRILEPTAL [Suspect]
     Dosage: 600 MG
     Route: 048
  4. DEPAKINE [Suspect]
     Indication: EPILEPSY
     Route: 048
  5. LAMICTAL [Suspect]
     Indication: EPILEPSY
     Route: 048
  6. DOGMATIL (SULPIRIDE) [Concomitant]
  7. SERENASE (HALOPERIDOL) [Concomitant]
     Route: 048
  8. STILNOCT (ZOLPIDEM TARTRATE) [Concomitant]
  9. PENDIL (FELODIPINE) [Concomitant]
  10. CORODIL (ENALAPRIL) [Concomitant]
  11. OXAZEPAM (OXAZEPAM) [Concomitant]

REACTIONS (7)
  - Sudden death [None]
  - Wrong drug administered [None]
  - Toxicity to various agents [None]
  - Cardiac arrest [Unknown]
  - Loss of consciousness [Unknown]
  - Aggression [Unknown]
  - Agitation [Unknown]
